FAERS Safety Report 7988965-2 (Version None)
Quarter: 2011Q4

REPORT INFORMATION
  Report Type: 
  Country: None (occurrence: None)
  Receive Date: 20111219
  Receipt Date: 20111207
  Transmission Date: 20120403
  Serious: Yes (Hospitalization, Other)
  Sender: FDA-Public Use
  Company Number: US-BAYER-2011-042214

PATIENT
  Age: 28 Year
  Sex: Female
  Weight: 104.31 kg

DRUGS (16)
  1. NASONEX [Concomitant]
     Indication: RHINITIS ALLERGIC
  2. LAMISIL [Concomitant]
     Dosage: 250 MG, DAILY
     Dates: start: 20050210, end: 20050408
  3. RHINOCORT [Concomitant]
     Indication: RHINITIS ALLERGIC
  4. CLARITIN [Concomitant]
     Indication: RHINITIS ALLERGIC
  5. ALLEGRA [Concomitant]
     Indication: SEASONAL ALLERGY
     Dosage: UNK
     Dates: start: 20050412, end: 20110225
  6. CELEBREX [Concomitant]
     Dosage: UNK
     Dates: start: 20040816, end: 20071206
  7. OXYCODONE HCL [Concomitant]
     Indication: PAIN
  8. VALIUM [Concomitant]
     Indication: MUSCLE SPASMS
     Dosage: UNK
     Dates: start: 20030718, end: 20070831
  9. CLARITIN [Concomitant]
     Indication: SEASONAL ALLERGY
     Dosage: UNK
     Dates: start: 20050412, end: 20110225
  10. LEXAPRO [Concomitant]
     Indication: DEPRESSION
     Dosage: UNK
     Dates: start: 20040829, end: 20080204
  11. NASONEX [Concomitant]
     Indication: SEASONAL ALLERGY
     Dosage: UNK
     Dates: start: 20010604, end: 20100103
  12. ALLEGRA [Concomitant]
     Indication: RHINITIS ALLERGIC
  13. YASMIN [Suspect]
     Indication: CONTRACEPTION
     Dosage: UNK
     Dates: start: 20040714, end: 20040808
  14. OXYCODONE HCL [Concomitant]
     Indication: INTERVERTEBRAL DISC PROTRUSION
     Dosage: UNK
     Dates: start: 20030718, end: 20110328
  15. RHINOCORT [Concomitant]
     Indication: SEASONAL ALLERGY
     Dosage: UNK
     Dates: start: 20050412, end: 20061010
  16. IBUPROFEN [Concomitant]
     Dosage: UNK
     Dates: start: 20040427

REACTIONS (13)
  - PULMONARY EMBOLISM [None]
  - DEEP VEIN THROMBOSIS [None]
  - CHEST PAIN [None]
  - DYSPNOEA [None]
  - GENERAL PHYSICAL HEALTH DETERIORATION [None]
  - ANXIETY [None]
  - ACUTE RESPIRATORY FAILURE [None]
  - PAIN [None]
  - PAIN IN EXTREMITY [None]
  - MUSCLE SPASMS [None]
  - TACHYCARDIA [None]
  - GAIT DISTURBANCE [None]
  - EMOTIONAL DISTRESS [None]
